FAERS Safety Report 5013628-5 (Version None)
Quarter: 2006Q2

REPORT INFORMATION
  Report Type: 
  Country: None (occurrence: None)
  Receive Date: 20060530
  Receipt Date: 20060425
  Transmission Date: 20061013
  Serious: Yes (Hospitalization)
  Sender: FDA-Public Use
  Company Number: JP-JPN-A200601371

PATIENT
  Age: 83 Year
  Sex: Female
  Weight: 31 kg

DRUGS (7)
  1. VALTREX [Suspect]
     Indication: HERPES ZOSTER
     Dosage: 1000MG PER DAY
     Route: 048
     Dates: start: 20060421, end: 20060421
  2. SENNOSIDE [Suspect]
     Indication: CONSTIPATION
     Dosage: 1U PER DAY
     Route: 048
  3. CALTAN [Concomitant]
     Indication: HYPERPHOSPHATAEMIA
     Route: 048
  4. BIOFERMIN [Concomitant]
     Indication: ENTEROCOLITIS
     Route: 048
  5. ALFAROL [Concomitant]
     Indication: RENAL OSTEODYSTROPHY
     Route: 048
  6. FERRO [Concomitant]
     Indication: IRON DEFICIENCY ANAEMIA
     Route: 048
  7. BLOPRESS [Concomitant]
     Indication: HYPERTENSION
     Dosage: 4MG PER DAY
     Route: 048

REACTIONS (11)
  - ABASIA [None]
  - COMMUNICATION DISORDER [None]
  - DEPRESSED LEVEL OF CONSCIOUSNESS [None]
  - DYSARTHRIA [None]
  - DYSLALIA [None]
  - EXCITABILITY [None]
  - GAIT DISTURBANCE [None]
  - INCONTINENCE [None]
  - MUSCULAR WEAKNESS [None]
  - NERVOUS SYSTEM DISORDER [None]
  - RESTLESSNESS [None]
